FAERS Safety Report 11279330 (Version 4)
Quarter: 2015Q4

REPORT INFORMATION
  Report Type: Report from Study
  Country: BR (occurrence: BR)
  Receive Date: 20150717
  Receipt Date: 20151117
  Transmission Date: 20160304
  Serious: Yes (Disabling, Other)
  Sender: FDA-Public Use
  Company Number: BR-ABBVIE-15K-020-1415901-00

PATIENT
  Age: 52 Year
  Sex: Female
  Weight: 72 kg

DRUGS (11)
  1. METHOTREXATE [Suspect]
     Active Substance: METHOTREXATE
     Indication: ARTHRITIS
     Route: 065
  2. SALICYLIC ACID /MENTHOL AND ASSOCIATIONS (GELOL) [Concomitant]
     Indication: INFLAMMATION
  3. DORFLEX [Concomitant]
     Active Substance: CAFFEINE\DIPYRONE\ORPHENADRINE
     Indication: MUSCLE RELAXANT THERAPY
     Route: 048
  4. AMITRIPTYLINE [Concomitant]
     Active Substance: AMITRIPTYLINE
     Indication: ANXIETY
     Dosage: WHEN SHE CAN NOT SLEEP
     Route: 048
     Dates: start: 2013
  5. SALICYLIC ACID /MENTHOL AND ASSOCIATIONS (GELOL) [Concomitant]
     Indication: PAIN
     Dosage: ONCE
     Route: 061
  6. ARAVA [Suspect]
     Active Substance: LEFLUNOMIDE
     Indication: ARTHRITIS
     Route: 065
  7. AMITRIPTYLINE [Concomitant]
     Active Substance: AMITRIPTYLINE
     Indication: SLEEP DISORDER
  8. FOLIC ACID. [Concomitant]
     Active Substance: FOLIC ACID
     Indication: PRODUCT USED FOR UNKNOWN INDICATION
     Route: 048
     Dates: start: 2013
  9. HUMIRA [Suspect]
     Active Substance: ADALIMUMAB
     Indication: RHEUMATOID ARTHRITIS
     Route: 058
     Dates: start: 20141208, end: 20150201
  10. HUMIRA [Suspect]
     Active Substance: ADALIMUMAB
     Route: 058
     Dates: start: 2015
  11. DICLOFENAC [Concomitant]
     Active Substance: DICLOFENAC
     Indication: ANTIINFLAMMATORY THERAPY
     Dosage: 1 TABLET
     Route: 048
     Dates: end: 201506

REACTIONS (15)
  - Abasia [Not Recovered/Not Resolved]
  - Drug ineffective [Unknown]
  - Arthritis [Unknown]
  - Pain [Unknown]
  - Weight decreased [Unknown]
  - Inflammation [Unknown]
  - Pain in extremity [Unknown]
  - Osteoarthritis [Unknown]
  - Rheumatoid arthritis [Recovering/Resolving]
  - Dry eye [Unknown]
  - Joint swelling [Not Recovered/Not Resolved]
  - Arthropathy [Unknown]
  - Blood pressure increased [Recovered/Resolved]
  - Osteoporosis [Unknown]
  - Dry mouth [Unknown]

NARRATIVE: CASE EVENT DATE: 201504
